FAERS Safety Report 11807849 (Version 2)
Quarter: 2015Q4

REPORT INFORMATION
  Report Type: Report from Study
  Country: US (occurrence: US)
  Receive Date: 20151207
  Receipt Date: 20151214
  Transmission Date: 20160305
  Serious: No
  Sender: FDA-Public Use
  Company Number: PHEH2015US025299

PATIENT
  Age: 27 Year
  Sex: Female

DRUGS (1)
  1. GILENYA [Suspect]
     Active Substance: FINGOLIMOD HYDROCHLORIDE
     Indication: MULTIPLE SCLEROSIS
     Dosage: 0.5 MG, QD
     Route: 048
     Dates: start: 20151130

REACTIONS (9)
  - Headache [Unknown]
  - Migraine [Unknown]
  - Pruritus [Recovered/Resolved]
  - Urticaria [Recovered/Resolved]
  - Dizziness [Unknown]
  - Abdominal discomfort [Unknown]
  - Diarrhoea [Unknown]
  - Malaise [Unknown]
  - Dermatitis [Recovered/Resolved]

NARRATIVE: CASE EVENT DATE: 20151130
